FAERS Safety Report 21761505 (Version 1)
Quarter: 2022Q4

REPORT INFORMATION
  Report Type: Spontaneous
  Country: US (occurrence: None)
  Receive Date: 20221221
  Receipt Date: 20221221
  Transmission Date: 20230112
  Serious: No
  Sender: FDA-Public Use
  Company Number: None

PATIENT
  Age: 37 Year
  Sex: Female

DRUGS (1)
  1. DUPIXENT [Suspect]
     Active Substance: DUPILUMAB
     Indication: Dermatitis
     Dosage: FREQUENCY : EVERY OTHER WEEK;?

REACTIONS (3)
  - Injection site reaction [None]
  - Heart rate increased [None]
  - Injection related reaction [None]

NARRATIVE: CASE EVENT DATE: 20221221
